FAERS Safety Report 14718615 (Version 1)
Quarter: 2018Q2

REPORT INFORMATION
  Report Type: Report from Study
  Country: BR (occurrence: BR)
  Receive Date: 20180405
  Receipt Date: 20180405
  Transmission Date: 20180711
  Serious: Yes (Other)
  Sender: FDA-Public Use
  Company Number: BR-ROCHE-2096752

PATIENT
  Sex: Female
  Weight: 84 kg

DRUGS (4)
  1. KADCYLA [Suspect]
     Active Substance: ADO-TRASTUZUMAB EMTANSINE
     Indication: BREAST CANCER
     Route: 065
     Dates: start: 20150101, end: 20150630
  2. PERJETA [Concomitant]
     Active Substance: PERTUZUMAB
     Indication: BREAST CANCER
     Dosage: LOADING DOSE 840 MG FOLLOWED BY MAINTAINANCE DOSE 420 MG
     Route: 065
     Dates: start: 20150101, end: 20150629
  3. HERCEPTIN [Concomitant]
     Active Substance: TRASTUZUMAB
     Indication: BREAST CANCER
     Dosage: LAODING DOSE 8 MG/KG FOLLOWED BY MAINTAINANCE DOSE 6 MG/KG
     Route: 065
     Dates: start: 20150101, end: 20150629
  4. TAXOTERE [Concomitant]
     Active Substance: DOCETAXEL
     Indication: BREAST CANCER
     Route: 065
     Dates: start: 20150101, end: 20150629

REACTIONS (2)
  - Disease progression [Unknown]
  - Drug ineffective [Unknown]
